FAERS Safety Report 19413785 (Version 2)
Quarter: 2021Q3

REPORT INFORMATION
  Report Type: Spontaneous
  Country: JP (occurrence: JP)
  Receive Date: 20210614
  Receipt Date: 20210715
  Transmission Date: 20211014
  Serious: Yes (Other)
  Sender: FDA-Public Use
  Company Number: JP-JNJFOC-20210618287

PATIENT
  Age: 6 Decade
  Sex: Female

DRUGS (2)
  1. UPTRAVI [Concomitant]
     Active Substance: SELEXIPAG
     Route: 048
  2. TRACLEER [Suspect]
     Active Substance: BOSENTAN
     Indication: PULMONARY ARTERIAL HYPERTENSION
     Dosage: BOSENTAN HYDRATE:62.5MG
     Route: 048

REACTIONS (4)
  - Sepsis [Unknown]
  - Acute respiratory distress syndrome [Unknown]
  - Enteritis infectious [Unknown]
  - Venous injury [Unknown]
